FAERS Safety Report 25727284 (Version 1)
Quarter: 2025Q3

REPORT INFORMATION
  Report Type: Spontaneous
  Country: US (occurrence: US)
  Receive Date: 20250826
  Receipt Date: 20250826
  Transmission Date: 20251020
  Serious: Yes (Hospitalization, Other)
  Sender: SANOFI AVENTIS
  Company Number: US-SA-2025SA254395

PATIENT
  Age: 45 Year
  Sex: Female

DRUGS (3)
  1. DUPIXENT [Suspect]
     Active Substance: DUPILUMAB
     Indication: Asthma
     Dosage: 300 MG, QOW
     Route: 058
     Dates: start: 202503
  2. AFINITOR [Concomitant]
     Active Substance: EVEROLIMUS
     Dates: start: 202503
  3. EVEROLIMUS [Concomitant]
     Active Substance: EVEROLIMUS

REACTIONS (5)
  - Diabetic ketoacidosis [Unknown]
  - Post procedural sepsis [Unknown]
  - Medical device site infection [Unknown]
  - Bone contusion [Unknown]
  - Carcinoid tumour pulmonary [Unknown]

NARRATIVE: CASE EVENT DATE: 20250101
